FAERS Safety Report 4946664-5 (Version None)
Quarter: 2006Q1

REPORT INFORMATION
  Report Type: 
  Country: None (occurrence: None)
  Receive Date: 20060317
  Receipt Date: 20050831
  Transmission Date: 20060701
  Serious: Yes (Hospitalization, Disabling)
  Sender: FDA-Public Use
  Company Number: US-MERCK-0509USA00201

PATIENT
  Age: 55 Year
  Sex: Female
  Weight: 49 kg

DRUGS (1)
  1. VIOXX [Suspect]
     Indication: FIBROMYALGIA
     Route: 048
     Dates: start: 20000501, end: 20041001

REACTIONS (16)
  - ASTHENIA [None]
  - BRONCHITIS [None]
  - CEREBROVASCULAR ACCIDENT [None]
  - COELIAC DISEASE [None]
  - DEPRESSION [None]
  - DIABETES INSIPIDUS [None]
  - DRUG SCREEN POSITIVE [None]
  - EMOTIONAL DISORDER [None]
  - FIBROMYALGIA [None]
  - HYPERVENTILATION [None]
  - INFARCTION [None]
  - ISCHAEMIC CEREBRAL INFARCTION [None]
  - MEMORY IMPAIRMENT [None]
  - MYOCARDIAL INFARCTION [None]
  - POLYMYALGIA [None]
  - SINUSITIS [None]
